FAERS Safety Report 6256194-9 (Version None)
Quarter: 2009Q3

REPORT INFORMATION
  Report Type: 
  Country: None (occurrence: None)
  Receive Date: 20090706
  Receipt Date: 20090625
  Transmission Date: 20100115
  Serious: Yes (Other)
  Sender: FDA-Public Use
  Company Number: PHHY2009AU26480

PATIENT
  Age: 56 Year
  Sex: Male
  Weight: 150 kg

DRUGS (8)
  1. OCTREOTIDE ACETATE [Suspect]
     Dosage: 150 UG, BID
     Route: 058
     Dates: start: 19990101
  2. OCTREOTIDE ACETATE [Suspect]
     Dosage: 50 UG/DAY
     Route: 058
  3. OCTREOTIDE ACETATE [Suspect]
     Dosage: 150 UG/DAY
     Route: 058
  4. OCTREOTIDE ACETATE [Suspect]
     Dosage: 120 UG/DAY
  5. OCTREOTIDE ACETATE [Suspect]
     Dosage: 200 UG, QID
     Route: 058
  6. OCTREOTIDE ACETATE [Suspect]
     Dosage: 30 MG, QMO
  7. FLUOROURACIL [Concomitant]
  8. METHOTREXATE [Concomitant]

REACTIONS (15)
  - ACIDOSIS [None]
  - DEHYDRATION [None]
  - DIARRHOEA [None]
  - DISEASE PROGRESSION [None]
  - FLUID OVERLOAD [None]
  - HOT FLUSH [None]
  - HYPOKALAEMIA [None]
  - LETHARGY [None]
  - NAUSEA [None]
  - NEUROENDOCRINE TUMOUR [None]
  - POLYDIPSIA [None]
  - POLYURIA [None]
  - RENAL FAILURE [None]
  - TYPE 2 DIABETES MELLITUS [None]
  - VISION BLURRED [None]
